FAERS Safety Report 9263559 (Version 1)
Quarter: 2013Q2

REPORT INFORMATION
  Report Type: Spontaneous
  Country: FR (occurrence: FR)
  Receive Date: 20130430
  Receipt Date: 20130430
  Transmission Date: 20140414
  Serious: Yes (Hospitalization)
  Sender: FDA-Public Use
  Company Number: FR-PFIZER INC-2013127641

PATIENT
  Age: 87 Year
  Sex: Female

DRUGS (5)
  1. EFFEXOR LP [Suspect]
     Indication: DEPRESSION
     Dosage: UNK
     Route: 048
     Dates: end: 201302
  2. CORENITEC [Suspect]
     Indication: HYPERTENSION
     Dosage: UNK
     Route: 048
     Dates: end: 201302
  3. TAHOR [Concomitant]
  4. CERVOXAN [Concomitant]
  5. KARDEGIC [Concomitant]

REACTIONS (3)
  - Hyponatraemia [Recovered/Resolved]
  - Fall [Unknown]
  - Creatinine renal clearance decreased [Unknown]
